FAERS Safety Report 7061375-0 (Version None)
Quarter: 2010Q4

REPORT INFORMATION
  Report Type: 
  Country: None (occurrence: None)
  Receive Date: 20101026
  Receipt Date: 20101013
  Transmission Date: 20110411
  Serious: Yes (Other)
  Sender: FDA-Public Use
  Company Number: PHHY2010CA59861

PATIENT
  Sex: Female

DRUGS (12)
  1. ACLASTA [Suspect]
     Indication: OSTEOPOROSIS
     Dosage: 5 MG YEARLY
     Dates: start: 20090801
  2. DOMPERIDONE 20 [Concomitant]
  3. CYMBALTA 90 [Concomitant]
  4. BENADRYL [Concomitant]
     Dosage: PRN
  5. ASPIRIN [Concomitant]
     Dosage: UNK
  6. OXAZEPAM 15-30 [Concomitant]
  7. MAXALT [Concomitant]
  8. CELL CEPT [Concomitant]
  9. AMBIEN CR [Concomitant]
  10. VITAMIN D [Concomitant]
  11. PREVACID [Concomitant]
  12. GRAVOL TAB [Concomitant]

REACTIONS (4)
  - NEURALGIA [None]
  - NEUROPATHY PERIPHERAL [None]
  - PAIN [None]
  - PARAESTHESIA [None]
